FAERS Safety Report 5579975-3 (Version None)
Quarter: 2007Q4

REPORT INFORMATION
  Report Type: 
  Country: None (occurrence: None)
  Receive Date: 20071226
  Receipt Date: 20071221
  Transmission Date: 20080405
  Serious: Yes (Hospitalization, Disabling)
  Sender: FDA-Public Use
  Company Number: B0500792A

PATIENT
  Age: 83 Year

DRUGS (4)
  1. ALKERAN [Suspect]
     Indication: SARCOMA
     Dosage: 1 MG/KG
  2. TUMOR NECROSIS FACTOR INJECTION (TUMOR NECROSIS FACTOR) [Suspect]
     Indication: SARCOMA
     Dosage: 2 MG
  3. HEPARIN [Concomitant]
  4. PROTAMINE SULFATE [Concomitant]

REACTIONS (2)
  - AMPUTATION [None]
  - SOFT TISSUE NECROSIS [None]
